FAERS Safety Report 10501505 (Version 1)
Quarter: 2014Q4

REPORT INFORMATION
  Report Type: Spontaneous
  Country: US (occurrence: None)
  Receive Date: 20141006
  Receipt Date: 20141006
  Transmission Date: 20150528
  Serious: Yes (Life-Threatening, Hospitalization)
  Sender: FDA-Public Use
  Company Number: None

PATIENT
  Age: 31 Year
  Sex: Female
  Weight: 48.5 kg

DRUGS (12)
  1. ATIVAN [Concomitant]
     Active Substance: LORAZEPAM
  2. DRONABINOL. [Concomitant]
     Active Substance: DRONABINOL
  3. CHOLECALCIFEROL [Concomitant]
     Active Substance: CHOLECALCIFEROL
  4. TEPADINA [Suspect]
     Active Substance: THIOTEPA
     Indication: METASTASES TO MENINGES
     Route: 037
     Dates: start: 20140811
  5. NORCO [Concomitant]
     Active Substance: ACETAMINOPHEN\HYDROCODONE BITARTRATE
  6. COMPAZINE [Concomitant]
     Active Substance: PROCHLORPERAZINE MALEATE
  7. TEPADINA [Suspect]
     Active Substance: THIOTEPA
     Indication: BREAST CANCER METASTATIC
     Route: 037
     Dates: start: 20140811
  8. SUMATRIPTAN. [Concomitant]
     Active Substance: SUMATRIPTAN
  9. LETROZOLE. [Concomitant]
     Active Substance: LETROZOLE
  10. PRILOSEC [Concomitant]
     Active Substance: OMEPRAZOLE MAGNESIUM
  11. MORPHINE [Concomitant]
     Active Substance: MORPHINE
  12. DILAUDID [Concomitant]
     Active Substance: HYDROMORPHONE HYDROCHLORIDE

REACTIONS (7)
  - Photophobia [None]
  - Nausea [None]
  - Headache [None]
  - Musculoskeletal stiffness [None]
  - Phonophobia [None]
  - Vomiting [None]
  - Pyrexia [None]

NARRATIVE: CASE EVENT DATE: 20140811
